FAERS Safety Report 23166538 (Version 1)
Quarter: 2023Q4

REPORT INFORMATION
  Report Type: Spontaneous
  Country: CN (occurrence: CN)
  Receive Date: 20231109
  Receipt Date: 20231109
  Transmission Date: 20240110
  Serious: Yes (Other)
  Sender: FDA-Public Use
  Company Number: CN-MYLANLABS-2023M1118251

PATIENT
  Age: 73 Year
  Sex: Female

DRUGS (1)
  1. LIPITOR [Suspect]
     Active Substance: ATORVASTATIN CALCIUM
     Indication: Lipids abnormal
     Dosage: 20 MILLIGRAM, QD
     Route: 048
     Dates: start: 20230621, end: 20231021

REACTIONS (3)
  - Chest discomfort [Unknown]
  - Liver injury [Unknown]
  - Chest pain [Unknown]

NARRATIVE: CASE EVENT DATE: 20231021
